FAERS Safety Report 17502126 (Version 1)
Quarter: 2020Q1

REPORT INFORMATION
  Report Type: Spontaneous
  Country: US (occurrence: US)
  Receive Date: 20200305
  Receipt Date: 20200305
  Transmission Date: 20200409
  Serious: Yes (Hospitalization)
  Sender: FDA-Public Use
  Company Number: US-TEVA-2020-US-1193569

PATIENT
  Age: 78 Year
  Sex: Male
  Weight: 95 kg

DRUGS (4)
  1. WARFARIN [Suspect]
     Active Substance: WARFARIN
     Indication: ANTICOAGULANT THERAPY
     Dosage: 5 MILLIGRAM DAILY;
     Route: 048
  2. HEPARIN [Suspect]
     Active Substance: HEPARIN SODIUM
     Dosage: 1,000 UNITS/HR (EQUATING TO 10.5 UNITS/KG/HR) : FIRST ADMINISTRATION
     Route: 041
  3. HEPARIN [Suspect]
     Active Substance: HEPARIN SODIUM
     Dosage: 1,000 UNITS/HR : DAY 7 OF HOSPITALISATION
     Route: 041
  4. HEPARIN [Suspect]
     Active Substance: HEPARIN SODIUM
     Dosage: 700 UNITS/HR (3 UNITS/KG/HR) : SECOND ADMINISTRATION
     Route: 041

REACTIONS (1)
  - Chest wall haematoma [Recovered/Resolved]
